FAERS Safety Report 22247114 (Version 3)
Quarter: 2023Q4

REPORT INFORMATION
  Report Type: Report from Study
  Country: CA (occurrence: CA)
  Receive Date: 20230424
  Receipt Date: 20231122
  Transmission Date: 20240110
  Serious: Yes (Hospitalization, Other)
  Sender: FDA-Public Use
  Company Number: CA-JNJFOC-20230119994

PATIENT
  Age: 61 Year
  Sex: Female
  Weight: 66 kg

DRUGS (6)
  1. REMICADE [Suspect]
     Active Substance: INFLIXIMAB
     Indication: Rheumatoid arthritis
     Route: 041
     Dates: start: 20160114
  2. REMICADE [Suspect]
     Active Substance: INFLIXIMAB
     Route: 041
  3. COVID-19 VACCINE [Concomitant]
     Indication: COVID-19 prophylaxis
     Route: 065
     Dates: start: 20221220, end: 20221220
  4. METHOTREXATE [Concomitant]
     Active Substance: METHOTREXATE
     Indication: Product used for unknown indication
     Route: 065
  5. METHOTREXATE [Concomitant]
     Active Substance: METHOTREXATE
     Indication: Product used for unknown indication
  6. CALCIUM [Concomitant]
     Active Substance: CALCIUM
     Indication: Product used for unknown indication
     Route: 065

REACTIONS (9)
  - Diverticulitis [Recovering/Resolving]
  - Intestinal polyp [Recovering/Resolving]
  - Vomiting [Recovered/Resolved]
  - Candida infection [Recovering/Resolving]
  - Colitis [Recovering/Resolving]
  - Gastrointestinal inflammation [Recovering/Resolving]
  - Hypertrophy of tongue papillae [Recovering/Resolving]
  - Glossodynia [Recovering/Resolving]
  - Blood potassium abnormal [Recovered/Resolved]

NARRATIVE: CASE EVENT DATE: 20221229
